FAERS Safety Report 5861564-4 (Version None)
Quarter: 2008Q3

REPORT INFORMATION
  Report Type: 
  Country: None (occurrence: None)
  Receive Date: 20080826
  Receipt Date: 20080819
  Transmission Date: 20090109
  Serious: Yes (Other)
  Sender: FDA-Public Use
  Company Number: 2008BI015838

PATIENT
  Age: 24 Year
  Sex: Female

DRUGS (1)
  1. TYSABRI [Suspect]
     Indication: MULTIPLE SCLEROSIS
     Dosage: 300 MG;QM;IV
     Route: 042
     Dates: start: 20070829

REACTIONS (4)
  - CATHETER RELATED COMPLICATION [None]
  - CATHETER THROMBOSIS [None]
  - JUGULAR VEIN THROMBOSIS [None]
  - POST PROCEDURAL COMPLICATION [None]
